FAERS Safety Report 23998371 (Version 1)
Quarter: 2024Q2

REPORT INFORMATION
  Report Type: Spontaneous
  Country: IN (occurrence: IN)
  Receive Date: 20240621
  Receipt Date: 20240621
  Transmission Date: 20240716
  Serious: Yes (Hospitalization, Other)
  Sender: FDA-Public Use
  Company Number: IN-TOLMAR, INC.-24IN050256

PATIENT
  Age: 34 Year
  Sex: Female

DRUGS (5)
  1. LEUPROLIDE ACETATE [Suspect]
     Active Substance: ISOPROPYL ALCOHOL\LEUPROLIDE ACETATE
     Indication: Ovulation induction
     Dosage: 2 MILLIGRAM
  2. LETROZOLE [Suspect]
     Active Substance: LETROZOLE
     Indication: Ovulation induction
     Dosage: 5 MILLIGRAM
  3. CHORIOGONADOTROPIN ALFA [Suspect]
     Active Substance: CHORIOGONADOTROPIN ALFA
     Indication: Ovulation induction
     Dosage: 75 INTERNATIONAL UNIT
  4. METHOTREXATE [Suspect]
     Active Substance: METHOTREXATE
     Indication: Ectopic pregnancy
     Dosage: 50 MILLIGRAM
  5. MIFEPRISTONE [Suspect]
     Active Substance: MIFEPRISTONE
     Indication: Ectopic pregnancy
     Dosage: 200 MILLIGRAM
     Route: 048

REACTIONS (5)
  - Ruptured ectopic pregnancy [Recovered/Resolved]
  - Haemoperitoneum [Recovered/Resolved]
  - Off label use [Unknown]
  - Exposure during pregnancy [Unknown]
  - Contraindicated product administered [Unknown]
